FAERS Safety Report 14570397 (Version 2)
Quarter: 2018Q3

REPORT INFORMATION
  Report Type: Spontaneous
  Country: US (occurrence: US)
  Receive Date: 20180226
  Receipt Date: 20180921
  Transmission Date: 20181010
  Serious: Yes (Hospitalization)
  Sender: FDA-Public Use
  Company Number: US-IGSA-GBI005248

PATIENT
  Age: 44 Year
  Sex: Male

DRUGS (29)
  1. LASILIX                            /00032601/ [Concomitant]
     Active Substance: FUROSEMIDE
     Dosage: 80 MG, Q.12H.
     Route: 042
     Dates: start: 20170312, end: 20170313
  2. VERSED [Concomitant]
     Active Substance: MIDAZOLAM HYDROCHLORIDE
     Dosage: UNK
     Route: 042
  3. POTASSIUM CHLORIDE. [Concomitant]
     Active Substance: POTASSIUM CHLORIDE
     Dosage: UNK
     Route: 048
  4. THIAMINE [Concomitant]
     Active Substance: THIAMINE
     Dosage: 100 MG, QD
     Route: 042
     Dates: start: 20170308, end: 20170316
  5. ALBUTEIN [Suspect]
     Active Substance: ALBUMIN HUMAN
     Dosage: 25 G, UNK
     Route: 042
     Dates: start: 20170312, end: 20170312
  6. INSULIN [Concomitant]
     Active Substance: INSULIN NOS
     Dosage: UNK
     Route: 042
  7. DUONEB [Concomitant]
     Active Substance: ALBUTEROL SULFATE\IPRATROPIUM BROMIDE
     Dosage: UNK UNK, Q.6H.
     Route: 055
  8. PROTONIX [Concomitant]
     Active Substance: PANTOPRAZOLE SODIUM
     Dosage: 40 MG, QD
     Route: 042
     Dates: start: 20170308
  9. ALBUTEIN [Suspect]
     Active Substance: ALBUMIN HUMAN
     Indication: HYPOVOLAEMIA
     Dosage: 12.5 G, Q.6H.
     Route: 042
     Dates: start: 20170308, end: 20170309
  10. ALBUTEIN [Suspect]
     Active Substance: ALBUMIN HUMAN
     Dosage: 12.5 G, UNK
     Route: 042
     Dates: start: 20170313, end: 20170313
  11. FOLIC ACID. [Concomitant]
     Active Substance: FOLIC ACID
     Dosage: 1 MG, QD
     Route: 042
     Dates: start: 20170308
  12. MICAFUNGIN [Concomitant]
     Active Substance: MICAFUNGIN
     Dosage: 100 MG, QD
     Route: 042
  13. ALBUTEIN [Suspect]
     Active Substance: ALBUMIN HUMAN
     Dosage: 25 G, Q.6H.
     Route: 042
     Dates: start: 20170310, end: 20170311
  14. SODIUM BICARBONATE. [Concomitant]
     Active Substance: SODIUM BICARBONATE
     Dosage: UNK
     Route: 042
     Dates: start: 20170310, end: 20170312
  15. LEVOPHED [Concomitant]
     Active Substance: NOREPINEPHRINE BITARTRATE
     Dosage: UNK
     Route: 042
     Dates: start: 20170308
  16. POTASSIUM PHOSPHATE [Concomitant]
     Active Substance: POTASSIUM PHOSPHATE
     Dosage: UNK
     Route: 042
  17. LANTUS [Concomitant]
     Active Substance: INSULIN GLARGINE
     Dosage: 44 UNK, QD
     Route: 058
  18. HUMALOG [Concomitant]
     Active Substance: INSULIN LISPRO
     Dosage: UNK
     Route: 058
  19. POTASSIUM CHLORIDE. [Concomitant]
     Active Substance: POTASSIUM CHLORIDE
     Dosage: UNK
     Route: 042
  20. ALBUTEIN [Suspect]
     Active Substance: ALBUMIN HUMAN
     Dosage: 12.5 G, UNK
     Route: 042
     Dates: start: 20170312, end: 20170312
  21. LIBRIUM [Concomitant]
     Active Substance: CHLORDIAZEPOXIDE HYDROCHLORIDE
     Dosage: 25 MG, Q.8H.
     Route: 048
     Dates: start: 20170311
  22. FENTANYL. [Concomitant]
     Active Substance: FENTANYL
     Dosage: UNK
     Route: 042
     Dates: start: 20170308
  23. FOMEPIZOLE. [Concomitant]
     Active Substance: FOMEPIZOLE
     Dosage: 900 MG, Q.12H.
     Dates: start: 20170309
  24. VANCOMYCIN [Concomitant]
     Active Substance: VANCOMYCIN
     Dosage: 1500 MG, Q.12H.
     Route: 042
     Dates: start: 20170308, end: 20170314
  25. ALBUTEIN [Suspect]
     Active Substance: ALBUMIN HUMAN
     Dosage: 25 G, UNK
     Route: 042
     Dates: start: 20170313, end: 20170313
  26. FOMEPIZOLE. [Concomitant]
     Active Substance: FOMEPIZOLE
     Dosage: 1300 MG, TOTAL
     Dates: start: 20170308
  27. HEPARIN [Concomitant]
     Active Substance: HEPARIN SODIUM
     Dosage: 5000 IU, Q.8H.
     Route: 058
  28. MEROPENEM. [Concomitant]
     Active Substance: MEROPENEM
     Dosage: 500 MG, Q.6H.
     Route: 042
     Dates: start: 20170308, end: 20170313
  29. SODIUM PHOSPHATE [Concomitant]
     Active Substance: SODIUM PHOSPHATE
     Dosage: UNK UNK, TOTAL
     Dates: start: 20170308

REACTIONS (1)
  - Rash [Recovered/Resolved]

NARRATIVE: CASE EVENT DATE: 20170313
